FAERS Safety Report 5475160-4 (Version None)
Quarter: 2007Q4

REPORT INFORMATION
  Report Type: 
  Country: None (occurrence: None)
  Receive Date: 20071002
  Receipt Date: 20070920
  Transmission Date: 20080405
  Serious: Yes (Hospitalization)
  Sender: FDA-Public Use
  Company Number: BE-PFIZER INC-2007071842

PATIENT
  Sex: Female

DRUGS (6)
  1. SU-011,248 [Suspect]
     Indication: BREAST CANCER
     Route: 048
     Dates: start: 20070727, end: 20070829
  2. VALACYCLOVIR HCL [Concomitant]
     Dosage: TEXT:500 MG
     Route: 048
     Dates: start: 20070823, end: 20070829
  3. TRAMADOL HCL [Concomitant]
     Route: 048
     Dates: start: 20070720, end: 20070829
  4. BUPRENORPHINE HCL [Concomitant]
     Dates: start: 20070829, end: 20070829
  5. SULFACETAMIDE [Concomitant]
     Dates: start: 20070823, end: 20070829
  6. POTASSIUM PERMANGANATE [Concomitant]
     Dates: start: 20070823, end: 20070904

REACTIONS (1)
  - BACTERIAL SEPSIS [None]
